FAERS Safety Report 21532617 (Version 1)
Quarter: 2022Q4

REPORT INFORMATION
  Report Type: Spontaneous
  Country: US (occurrence: US)
  Receive Date: 20221101
  Receipt Date: 20221101
  Transmission Date: 20230113
  Serious: No
  Sender: FDA-Public Use
  Company Number: US-BRISTOL-MYERS SQUIBB COMPANY-2022-129619

PATIENT
  Age: 84 Year
  Sex: Male
  Weight: 3 kg

DRUGS (11)
  1. POMALYST [Suspect]
     Active Substance: POMALIDOMIDE
     Indication: Plasma cell myeloma
     Dosage: FREQ: PO 8D X 21 DAY
     Route: 048
     Dates: start: 20220916
  2. ACYCLOVIR [Concomitant]
     Active Substance: ACYCLOVIR
     Dosage: ACYCLOVIR 400MG TABLETS
  3. FOLIC ACID [Concomitant]
     Active Substance: FOLIC ACID
     Dosage: FOLIC ACID IMG TABLETS
  4. METOPROLOL SUCCINATE [Concomitant]
     Active Substance: METOPROLOL SUCCINATE
     Dosage: METOPROLOL ER SUCCINATE 50MG TABS X
  5. OZEMPIC [Concomitant]
     Active Substance: SEMAGLUTIDE
     Dosage: OZEMPIC IMG PER DOSE (IX4MG PEN)
  6. POTASSIUM CHLORIDE [Concomitant]
     Active Substance: POTASSIUM CHLORIDE
     Dosage: POTASSIUM CHLORIDE 20MEQ ER TABLETS
  7. PRADAXA [Concomitant]
     Active Substance: DABIGATRAN ETEXILATE MESYLATE
     Dosage: PRADAXA 1 IOMG CAPSULES
  8. TORSEMIDE [Concomitant]
     Active Substance: TORSEMIDE
     Dosage: TORSEMIDE IOMG TABLETS
  9. TOUJEO [Concomitant]
     Active Substance: INSULIN GLARGINE
     Dosage: TOUJEO SOLOSTAR 300U/ML PEN 1.5ML
  10. HUMALOG [Concomitant]
     Active Substance: INSULIN LISPRO
     Dosage: HUMALOG INSULIN (VL-7510) IOML
  11. VITAMIN D3 [Concomitant]
     Active Substance: CHOLECALCIFEROL
     Dosage: VITAMIN D3 5,000 ?IU (CHOLE) CAP

REACTIONS (1)
  - Rash [Recovering/Resolving]

NARRATIVE: CASE EVENT DATE: 20220919
